FAERS Safety Report 4618294-6 (Version None)
Quarter: 2005Q1

REPORT INFORMATION
  Report Type: 
  Country: None (occurrence: None)
  Receive Date: 20050323
  Receipt Date: 20050310
  Transmission Date: 20050727
  Serious: Yes (Life-Threatening)
  Sender: FDA-Public Use
  Company Number: 213135

PATIENT
  Age: 33 Year
  Sex: Female
  Weight: 45 kg

DRUGS (10)
  1. HERCEPTIN [Suspect]
     Indication: BREAST CANCER
     Dosage: 8 MG/KG, SINGLE, INTRAVENOUS
     Route: 042
     Dates: start: 20041220, end: 20041220
  2. HERCEPTIN [Suspect]
     Dosage: 6 MG/KG. Q3W, INTRAVENOUS
     Route: 042
     Dates: start: 20050117
  3. TAXOTERE [Suspect]
     Indication: BREAST CANCER
     Dosage: 100 MG/M2, SINGLE, INTRAVENOUS
     Route: 042
     Dates: start: 20041220, end: 20041220
  4. TAXOTERE [Suspect]
     Dosage: Q3W
     Dates: start: 20050117
  5. SOLUPRED (PREDNISOLONE) [Concomitant]
  6. ONDANSETRON HYDROCHLORIDE [Concomitant]
  7. VOGALENE (METOPIMAZINE) [Concomitant]
  8. SOLU-MEDROL [Concomitant]
  9. NEULASTA [Concomitant]
  10. NIFLUMIC ACID (NIFLUMIC ACID) [Concomitant]

REACTIONS (8)
  - BURNING SENSATION [None]
  - ERYTHEMA [None]
  - MUCOSAL INFLAMMATION [None]
  - NEUTROPENIA [None]
  - OEDEMA PERIPHERAL [None]
  - PAIN [None]
  - PHARYNGITIS [None]
  - SKIN EXFOLIATION [None]
